FAERS Safety Report 16037943 (Version 1)
Quarter: 2019Q1

REPORT INFORMATION
  Report Type: Spontaneous
  Country: US (occurrence: US)
  Receive Date: 20190305
  Receipt Date: 20190305
  Transmission Date: 20190418
  Serious: Yes (Other)
  Sender: FDA-Public Use
  Company Number: US-PFIZER INC-2019092083

PATIENT
  Age: 64 Year
  Sex: Male

DRUGS (2)
  1. DOCETAXEL. [Suspect]
     Active Substance: DOCETAXEL
     Dosage: UNK, CYCLIC (CHANGED TO EVERY OTHER WEEK ON CYCLE TWO AT DAY EIGHT)
  2. DOCETAXEL. [Suspect]
     Active Substance: DOCETAXEL
     Indication: PANCREATIC CARCINOMA METASTATIC
     Dosage: 25 MG/M2, WEEKLY (LOW DOSES)

REACTIONS (3)
  - Tuberculosis [Not Recovered/Not Resolved]
  - Pneumonitis [Not Recovered/Not Resolved]
  - Product use in unapproved indication [Unknown]
